FAERS Safety Report 6358922-0 (Version None)
Quarter: 2009Q3

REPORT INFORMATION
  Report Type: 
  Country: None (occurrence: None)
  Receive Date: 20090914
  Receipt Date: 20090901
  Transmission Date: 20100115
  Serious: Yes (Hospitalization)
  Sender: FDA-Public Use
  Company Number: 230398J09USA

PATIENT
  Age: 62 Year
  Sex: Female

DRUGS (5)
  1. REBIF [Suspect]
     Indication: MULTIPLE SCLEROSIS
     Dates: start: 20070924, end: 20090601
  2. REBIF [Suspect]
     Indication: MULTIPLE SCLEROSIS
     Dates: start: 20090601, end: 20090701
  3. TYLENOL NUMBER THREE (PANADEINE CO) [Concomitant]
  4. AMRIX [Concomitant]
  5. KLONOPIN [Concomitant]

REACTIONS (1)
  - PNEUMONIA [None]
